FAERS Safety Report 7339897-4 (Version None)
Quarter: 2011Q1

REPORT INFORMATION
  Report Type: 
  Country: None (occurrence: None)
  Receive Date: 20110228
  Receipt Date: 20110216
  Transmission Date: 20110831
  Serious: Yes (Other)
  Sender: FDA-Public Use
  Company Number: 834228

PATIENT
  Age: 6 Year
  Sex: Male
  Weight: 18.2 kg

DRUGS (14)
  1. PIPERACILLIN AND TAZOBACTAM [Suspect]
     Indication: FEBRILE NEUTROPENIA
     Dosage: 1.6 G GRAM(S), INTRAVENOUS (NOT OTHERWISE SPECIFIED)
     Route: 042
     Dates: start: 20110119, end: 20110121
  2. ALFACALCIDOL [Concomitant]
  3. ASPIRIN [Concomitant]
  4. CALCIUM CARBONATE [Concomitant]
  5. AMLODIPINE [Concomitant]
  6. RANITIDINE [Concomitant]
  7. SEPTRIN [Concomitant]
  8. TACROLIMUS [Suspect]
     Indication: PRODUCT USED FOR UNKNOWN INDICATION
  9. PREDNISOLONE [Concomitant]
  10. SYTRON [Concomitant]
  11. SODIUM BICARBONATE [Concomitant]
  12. TRIMETHOPRIM [Concomitant]
  13. AZATHIOPRINE [Concomitant]
  14. NEORECORMON [Concomitant]

REACTIONS (3)
  - DRUG LEVEL INCREASED [None]
  - DRUG INTERACTION [None]
  - NEPHROPATHY TOXIC [None]
